FAERS Safety Report 5615175-6 (Version None)
Quarter: 2008Q1

REPORT INFORMATION
  Report Type: 
  Country: None (occurrence: None)
  Receive Date: 20080206
  Receipt Date: 20071108
  Transmission Date: 20080703
  Serious: Yes (Hospitalization, Other)
  Sender: FDA-Public Use
  Company Number: A0692983A

PATIENT

DRUGS (4)
  1. ARIXTRA [Suspect]
     Dosage: 2.5MG UNKNOWN
     Route: 058
  2. CELEBREX [Concomitant]
  3. TYLENOL (CAPLET) [Concomitant]
  4. TRAMADOL HCL [Concomitant]

REACTIONS (1)
  - HAEMARTHROSIS [None]
